FAERS Safety Report 9841835 (Version 2)
Quarter: 2014Q1

REPORT INFORMATION
  Report Type: Report from Study
  Country: US (occurrence: US)
  Receive Date: 20140124
  Receipt Date: 20140211
  Transmission Date: 20141002
  Serious: Yes (Other)
  Sender: FDA-Public Use
  Company Number: US-PFIZER INC-2014022982

PATIENT
  Age: 43 Year
  Sex: Female
  Weight: 59.3 kg

DRUGS (32)
  1. NERATINIB [Suspect]
     Indication: BREAST CANCER
     Dosage: 240 MG, DAILY
     Route: 048
     Dates: start: 20120823, end: 20121031
  2. PACLITAXEL [Suspect]
     Indication: BREAST CANCER
     Dosage: 135.18 MG, WEEKLY
     Route: 042
     Dates: start: 20120809, end: 20121101
  3. DEXAMETHASONE SODIUM PHOSPHATE [Suspect]
     Indication: SUPPORTIVE CARE
     Dosage: 20 MG, WEEKLY, 12H AND 6H PRIOR TO CHEMO
     Route: 048
     Dates: start: 20120808, end: 20121101
  4. DEXAMETHASONE SODIUM PHOSPHATE [Suspect]
     Dosage: 20 MG, QWK, PRN
     Route: 042
     Dates: start: 20120809, end: 20121018
  5. DEXAMETHASONE SODIUM PHOSPHATE [Suspect]
     Dosage: 10 MG, QWK, PRN
     Route: 042
     Dates: start: 20120830, end: 20121101
  6. VITAMIN D3 [Concomitant]
     Dosage: UNK
     Dates: start: 20120710
  7. PECTIN [Concomitant]
     Dosage: UNK
     Dates: start: 20120710
  8. GLUTAMINE [Concomitant]
     Dosage: UNK
     Dates: start: 20120730, end: 20121024
  9. FISH OIL [Concomitant]
     Dosage: UNK
     Dates: start: 20120806
  10. PROBIOTICS NOS [Concomitant]
     Dosage: UNK
     Dates: start: 20120806
  11. ACETAMINOPHEN W/OXYCODONE [Concomitant]
     Dosage: UNK
     Dates: start: 20120801, end: 20121024
  12. ONDANSETRON [Concomitant]
     Dosage: UNK
     Dates: start: 20120809
  13. DOCUSATE SODIUM [Concomitant]
     Dosage: UNK
     Dates: start: 20120801
  14. LIDOCAINE [Concomitant]
     Dosage: UNK
     Dates: start: 20120809
  15. HEPARIN [Concomitant]
     Dosage: UNK
     Dates: start: 20120809
  16. SODIUM CHLORIDE [Concomitant]
     Dosage: UNK
     Dates: start: 20120809, end: 20121108
  17. FAMOTIDINE [Concomitant]
     Dosage: UNK
     Dates: start: 20120809, end: 20121101
  18. DIPHENHYDRAMINE [Concomitant]
     Dosage: UNK
     Dates: start: 20120809, end: 20121101
  19. FILGRASTIM [Concomitant]
     Dosage: UNK
     Dates: start: 20120823, end: 20121101
  20. LOPERAMIDE [Concomitant]
     Dosage: UNK
     Dates: start: 20120809, end: 20121126
  21. ZINC [Concomitant]
     Dosage: UNK
     Dates: start: 20120820
  22. PROCHLORPERAZINE [Concomitant]
     Dosage: UNK
     Dates: start: 20120821, end: 20121108
  23. LIDOCAINE AND PRILOCAINE [Concomitant]
     Dosage: UNK
     Dates: start: 20120823, end: 20121024
  24. OMEPRAZOLE [Concomitant]
     Dosage: UNK
     Dates: start: 20120823, end: 20121126
  25. DESLORATADINE [Concomitant]
     Dosage: UNK
     Dates: start: 20120830, end: 20121101
  26. MULTIVITAMINS [Concomitant]
     Dosage: UNK
     Dates: start: 20120910
  27. TRIAZOLAM [Concomitant]
     Dosage: UNK
     Dates: start: 20121004, end: 20121025
  28. FLUARIX [Concomitant]
     Dosage: UNK
     Dates: start: 20121011, end: 20121011
  29. DEXTROSE AND SODIUM CHLORIDE INJECTION [Concomitant]
     Dosage: UNK
     Dates: start: 20121016, end: 20121016
  30. BISMUTH SUBSALICYLATE [Concomitant]
     Dosage: UNK
     Dates: start: 20120816
  31. BEANO [Concomitant]
     Dosage: UNK
     Dates: start: 20120816
  32. SIMETHICONE [Concomitant]
     Dosage: UNK
     Dates: start: 20120816

REACTIONS (3)
  - Substance-induced psychotic disorder [Recovered/Resolved]
  - Anxiety [Recovered/Resolved]
  - Agitation [Recovered/Resolved]
